FAERS Safety Report 16050281 (Version 1)
Quarter: 2019Q1

REPORT INFORMATION
  Report Type: Spontaneous
  Country: SE (occurrence: SE)
  Receive Date: 20190308
  Receipt Date: 20190308
  Transmission Date: 20190418
  Serious: Yes (Hospitalization)
  Sender: FDA-Public Use
  Company Number: SE-TEVA-2019-SE-1020240

PATIENT
  Age: 18 Year
  Sex: Female

DRUGS (2)
  1. LOPERAMIDE [Suspect]
     Active Substance: LOPERAMIDE
     Dosage: 200-300 TABLETTER
     Route: 048
     Dates: start: 20181222, end: 20181222
  2. PROMETHAZINE [Suspect]
     Active Substance: PROMETHAZINE\PROMETHAZINE HYDROCHLORIDE
     Dosage: 10 ST
     Dates: start: 20181222, end: 20181222

REACTIONS (5)
  - Intentional overdose [Unknown]
  - Sinus tachycardia [Unknown]
  - Intentional self-injury [Unknown]
  - Fatigue [Unknown]
  - Mydriasis [Unknown]

NARRATIVE: CASE EVENT DATE: 20181222
